FAERS Safety Report 6793894-6 (Version None)
Quarter: 2010Q2

REPORT INFORMATION
  Report Type: 
  Country: None (occurrence: None)
  Receive Date: 20100624
  Receipt Date: 20090310
  Transmission Date: 20101027
  Serious: Yes (Other)
  Sender: FDA-Public Use
  Company Number: US-PFIZER INC-2009184243

PATIENT
  Sex: Female
  Weight: 57 kg

DRUGS (9)
  1. PROVERA [Suspect]
     Indication: MENOPAUSE
     Dosage: 2.5 MG, UNK
     Dates: start: 20000101, end: 20020101
  2. PROVERA [Suspect]
     Indication: OSTEOPOROSIS PROPHYLAXIS
  3. PROVERA [Suspect]
     Indication: CARDIOVASCULAR DISORDER
  4. MEDROXYPROGESTERONE ACETATE [Suspect]
     Indication: MENOPAUSE
     Dosage: 2.5 MG, UNK
     Dates: start: 19930101, end: 19990101
  5. MEDROXYPROGESTERONE ACETATE [Suspect]
     Indication: OSTEOPOROSIS PROPHYLAXIS
  6. MEDROXYPROGESTERONE ACETATE [Suspect]
     Indication: CARDIOVASCULAR DISORDER
  7. PREMARIN [Suspect]
     Indication: MENOPAUSE
     Dosage: 0.625 MG, UNK
     Dates: start: 19930101, end: 20020101
  8. PREMARIN [Suspect]
     Indication: OSTEOPOROSIS PROPHYLAXIS
  9. PREMARIN [Suspect]
     Indication: CARDIOVASCULAR DISORDER

REACTIONS (1)
  - BREAST CANCER FEMALE [None]
